FAERS Safety Report 19719919 (Version 1)
Quarter: 2021Q3

REPORT INFORMATION
  Report Type: Spontaneous
  Country: DE (occurrence: DE)
  Receive Date: 20210818
  Receipt Date: 20210818
  Transmission Date: 20211014
  Serious: Yes (Hospitalization)
  Sender: FDA-Public Use
  Company Number: DE-MYLANLABS-2021M1051702

PATIENT
  Age: 99 Year
  Sex: Female

DRUGS (8)
  1. METOPROLOL. [Concomitant]
     Active Substance: METOPROLOL
     Dosage: 23.75 MG, 1?0?0?0, RETARD?TABLETTEN
  2. PREDNISOLONE. [Suspect]
     Active Substance: PREDNISOLONE
     Dosage: 5 MG, 1?0?0?0, TABLETTEN
  3. TORASEMID [Concomitant]
     Active Substance: TORSEMIDE
     Dosage: 5 MG, 1?0?0?0, TABLETTEN
  4. CARBIDOPA/LEVODOPA [Concomitant]
     Active Substance: CARBIDOPA\LEVODOPA
     Dosage: 25|100 MG, 0?0?0?1, RETARD?TABLETTEN
  5. PANTOPRAZOL                        /01263201/ [Concomitant]
     Active Substance: PANTOPRAZOLE
     Dosage: 40 MG, 1?0?1?0, TABLETTEN
  6. RIVAROXABAN [Suspect]
     Active Substance: RIVAROXABAN
     Indication: PRODUCT USED FOR UNKNOWN INDICATION
     Dosage: 10 MG, 1?0?0?0, TABLETTEN
     Route: 065
  7. FENTANYL. [Concomitant]
     Active Substance: FENTANYL
     Dosage: 100 ?G, 1X, SUBLINGUALTABLETTEN
     Route: 060
  8. TILIDINE [Concomitant]
     Active Substance: TILIDINE
     Dosage: 4|50 MG, TROPFEN

REACTIONS (1)
  - Skin haemorrhage [Unknown]

NARRATIVE: CASE EVENT DATE: 20201208
